FAERS Safety Report 4621972-6 (Version None)
Quarter: 2005Q1

REPORT INFORMATION
  Report Type: 
  Country: None (occurrence: None)
  Receive Date: 20050329
  Receipt Date: 20040607
  Transmission Date: 20050727
  Serious: Yes (Hospitalization)
  Sender: FDA-Public Use
  Company Number: FR-MERCK-0406FRA00038

PATIENT
  Age: 79 Year
  Sex: Female

DRUGS (6)
  1. VIOXX [Suspect]
     Route: 048
     Dates: end: 20030703
  2. GENTAMICIN [Suspect]
     Indication: SEPSIS
     Route: 042
     Dates: end: 20030703
  3. LISINOPRIL [Suspect]
     Route: 048
     Dates: end: 20030703
  4. FUROSEMIDE [Suspect]
     Route: 048
     Dates: end: 20030703
  5. AMIODARONE [Concomitant]
     Route: 048
     Dates: end: 20030711
  6. LANSOPRAZOLE [Concomitant]
     Route: 048
     Dates: end: 20030711

REACTIONS (7)
  - DEHYDRATION [None]
  - ERYSIPELAS [None]
  - HYPERPHOSPHATAEMIA [None]
  - HYPONATRAEMIA [None]
  - RENAL FAILURE ACUTE [None]
  - SEPSIS [None]
  - STAPHYLOCOCCAL SEPSIS [None]
